FAERS Safety Report 5696290-8 (Version None)
Quarter: 2008Q2

REPORT INFORMATION
  Report Type: 
  Country: None (occurrence: None)
  Receive Date: 20080407
  Receipt Date: 20080327
  Transmission Date: 20081010
  Serious: Yes (Hospitalization, Other)
  Sender: FDA-Public Use
  Company Number: US-ELI_LILLY_AND_COMPANY-US200708005988

PATIENT
  Sex: Female

DRUGS (7)
  1. FORTEO [Suspect]
     Indication: OSTEOPOROSIS
     Dosage: 20 UG, DAILY (1/D)
     Route: 058
     Dates: start: 20061201
  2. FORTEO [Suspect]
     Dosage: 20 UG, DAILY (1/D)
     Route: 058
  3. MULTI-VITAMIN [Concomitant]
  4. BONIVA [Concomitant]
     Indication: OSTEOPOROSIS
     Dosage: 150 MG, MONTHLY (1/M)
     Route: 048
  5. BONIVA [Concomitant]
     Dosage: 150 MG, MONTHLY (1/M)
     Route: 048
     Dates: start: 20071209
  6. CALCIUM W/VITAMIN D NOS [Concomitant]
     Dosage: UNK, 3/D
     Route: 048
  7. TYLENOL W/ CODEINE [Concomitant]

REACTIONS (10)
  - DYSPEPSIA [None]
  - DYSPHAGIA [None]
  - EROSIVE OESOPHAGITIS [None]
  - HIATUS HERNIA [None]
  - MALLORY-WEISS SYNDROME [None]
  - MOBILITY DECREASED [None]
  - MUSCLE SPASMS [None]
  - OESOPHAGEAL ACHALASIA [None]
  - OESOPHAGEAL OBSTRUCTION [None]
  - OESOPHAGEAL STENOSIS [None]
